FAERS Safety Report 16181222 (Version 2)
Quarter: 2019Q2

REPORT INFORMATION
  Report Type: Spontaneous
  Country: US (occurrence: US)
  Receive Date: 20190410
  Receipt Date: 20190523
  Transmission Date: 20190711
  Serious: No
  Sender: FDA-Public Use
  Company Number: US-ALKERMES INC.-ALK-2019-001874

PATIENT
  Age: 31 Year
  Sex: Male

DRUGS (4)
  1. VIVITROL [Suspect]
     Active Substance: NALTREXONE
     Indication: DRUG DEPENDENCE
  2. VIVITROL [Suspect]
     Active Substance: NALTREXONE
     Indication: SUBSTANCE DEPENDENCE
     Dosage: 380 MG, QMO
     Route: 030
  3. NALTREXONE [Suspect]
     Active Substance: NALTREXONE
     Indication: DRUG DEPENDENCE
  4. NALTREXONE [Suspect]
     Active Substance: NALTREXONE
     Indication: SUBSTANCE DEPENDENCE

REACTIONS (3)
  - Drug dependence [Unknown]
  - Headache [Unknown]
  - Off label use [Unknown]
